FAERS Safety Report 12361013 (Version 4)
Quarter: 2017Q1

REPORT INFORMATION
  Report Type: Report from Study
  Country: DE (occurrence: DE)
  Receive Date: 20160512
  Receipt Date: 20170221
  Transmission Date: 20170428
  Serious: Yes (Hospitalization, Other)
  Sender: FDA-Public Use
  Company Number: DE-INCYTE CORPORATION-2015IN005870

PATIENT
  Age: 80 Year
  Sex: Female
  Weight: 53 kg

DRUGS (19)
  1. JAKAVI [Suspect]
     Active Substance: RUXOLITINIB
     Indication: MYELOPROLIFERATIVE NEOPLASM
     Dosage: 40 MG, QD
     Route: 048
     Dates: start: 20131008, end: 20140216
  2. CITALOPRAM [Concomitant]
     Active Substance: CITALOPRAM HYDROBROMIDE
     Dosage: 20 MG, QD
     Route: 048
  3. CITALOPRAM [Concomitant]
     Active Substance: CITALOPRAM HYDROBROMIDE
     Dosage: 20 MG, QD
     Route: 048
  4. CITALOPRAM [Concomitant]
     Active Substance: CITALOPRAM HYDROBROMIDE
     Dosage: 20 MG, QD
     Route: 048
  5. EUTHYROX [Concomitant]
     Active Substance: LEVOTHYROXINE SODIUM
  6. CITALOPRAM [Concomitant]
     Active Substance: CITALOPRAM HYDROBROMIDE
     Indication: DEPRESSION
     Dosage: 20 MG, QD
     Route: 048
  7. CITALOPRAM [Concomitant]
     Active Substance: CITALOPRAM HYDROBROMIDE
     Dosage: 20 MG, QD
     Route: 048
  8. CITALOPRAM [Concomitant]
     Active Substance: CITALOPRAM HYDROBROMIDE
     Dosage: 20 MG, QD
     Route: 048
  9. JAKAVI [Suspect]
     Active Substance: RUXOLITINIB
     Dosage: 40 MG, QD
     Route: 048
     Dates: start: 20141115, end: 20141216
  10. JAKAVI [Suspect]
     Active Substance: RUXOLITINIB
     Dosage: 30 MG, QD
     Route: 048
     Dates: start: 20141217, end: 20150211
  11. EUTHYROX [Concomitant]
     Active Substance: LEVOTHYROXINE SODIUM
  12. EUTHYROX [Concomitant]
     Active Substance: LEVOTHYROXINE SODIUM
  13. JAKAVI [Suspect]
     Active Substance: RUXOLITINIB
     Dosage: 30 MG, QD
     Route: 048
     Dates: start: 20150520, end: 20150701
  14. EUTHYROX [Concomitant]
     Active Substance: LEVOTHYROXINE SODIUM
     Indication: HYPOTHYROIDISM
     Dosage: 50 UG, QD
     Route: 048
  15. JAKAVI [Suspect]
     Active Substance: RUXOLITINIB
     Indication: ESSENTIAL THROMBOCYTHAEMIA
     Dosage: 30 MG, QD
     Route: 048
     Dates: start: 20140217, end: 20141114
  16. JAKAVI [Suspect]
     Active Substance: RUXOLITINIB
     Dosage: 40 MG, QD
     Route: 048
     Dates: start: 20150212, end: 20150519
  17. JAKAVI [Suspect]
     Active Substance: RUXOLITINIB
     Dosage: 40 MG, QD
     Route: 048
     Dates: start: 20150702
  18. EUTHYROX [Concomitant]
     Active Substance: LEVOTHYROXINE SODIUM
     Dosage: 50 ?G, UNK
  19. EUTHYROX [Concomitant]
     Active Substance: LEVOTHYROXINE SODIUM

REACTIONS (9)
  - Deep vein thrombosis [Unknown]
  - C-reactive protein increased [Unknown]
  - Platelet count increased [Unknown]
  - Flatulence [Unknown]
  - Pulmonary embolism [Recovering/Resolving]
  - Depression [Not Recovered/Not Resolved]
  - Haemoglobin decreased [Unknown]
  - Lymphocyte percentage decreased [Unknown]
  - Urinary tract infection [Recovered/Resolved]

NARRATIVE: CASE EVENT DATE: 20150717
